FAERS Safety Report 25317199 (Version 1)
Quarter: 2025Q2

REPORT INFORMATION
  Report Type: Spontaneous
  Country: US (occurrence: US)
  Receive Date: 20250515
  Receipt Date: 20250515
  Transmission Date: 20250716
  Serious: No
  Sender: ROCHE
  Company Number: US-ROCHE-10000278803

PATIENT
  Age: 65 Year
  Sex: Female
  Weight: 60.05 kg

DRUGS (9)
  1. ACTEMRA ACTPEN [Suspect]
     Active Substance: TOCILIZUMAB
     Indication: Rheumatoid arthritis
     Dosage: ALTERNATING THIGHS, IN THE FRONT OF THE THIGH
     Route: 058
  2. LEVOTHROID [Suspect]
     Active Substance: LEVOTHYROXINE SODIUM
     Indication: Product used for unknown indication
     Dosage: IN THE MORNING, ON AN EMPTY STOMACH
     Route: 048
  3. LEVOTHROID [Suspect]
     Active Substance: LEVOTHYROXINE SODIUM
     Dosage: EVERY MORNING, ON AN EMPTY STOMACH
     Route: 048
  4. FOLIC ACID [Concomitant]
     Active Substance: FOLIC ACID
     Dosage: EVERY MORNING
     Route: 048
  5. TIROSINT [Concomitant]
     Active Substance: LEVOTHYROXINE SODIUM
     Dosage: EVERY MORNING, ON AN EMPTY STOMACH
     Route: 048
     Dates: start: 202503
  6. VITAMIN D3 [Concomitant]
     Active Substance: CHOLECALCIFEROL
     Dosage: 3 OF 50MG TABLETS
     Route: 048
  7. VITAMIN D3 [Concomitant]
     Active Substance: CHOLECALCIFEROL
     Route: 048
  8. HUMIRA [Concomitant]
     Active Substance: ADALIMUMAB
  9. METHOTREXATE [Concomitant]
     Active Substance: METHOTREXATE
     Indication: Rheumatoid arthritis
     Dosage: 7.5MG IN THE MORNING, AND 7.5MG IN THE EVENING, ONCE A WEEK, ON TUESDAYS
     Route: 048

REACTIONS (8)
  - Diarrhoea [Recovered/Resolved]
  - Abdominal pain upper [Recovered/Resolved]
  - Retching [Recovered/Resolved]
  - Vomiting [Recovered/Resolved]
  - Feeding disorder [Recovered/Resolved]
  - Blood thyroid stimulating hormone increased [Unknown]
  - Musculoskeletal stiffness [Recovered/Resolved]
  - Product complaint [Unknown]

NARRATIVE: CASE EVENT DATE: 20250201
